FAERS Safety Report 9668021 (Version 1)
Quarter: 2013Q4

REPORT INFORMATION
  Report Type: Spontaneous
  Country: IN (occurrence: IN)
  Receive Date: 20131104
  Receipt Date: 20131104
  Transmission Date: 20140711
  Serious: Yes (Death, Other)
  Sender: FDA-Public Use
  Company Number: IN-GLAXOSMITHKLINE-B0938624A

PATIENT
  Age: 54 Year
  Sex: Male

DRUGS (5)
  1. MELPHALAN [Suspect]
     Indication: PRODUCT USED FOR UNKNOWN INDICATION
     Dosage: 200MGM2 PER DAY
     Route: 042
  2. THALIDOMIDE [Concomitant]
  3. DEXAMETHASONE [Concomitant]
  4. GRANULOCYTE COLONY-STIMULATING FACTOR [Concomitant]
  5. RADIOTHERAPY [Concomitant]

REACTIONS (2)
  - Venoocclusive liver disease [Not Recovered/Not Resolved]
  - Multi-organ failure [Fatal]
